FAERS Safety Report 19266480 (Version 1)
Quarter: 2021Q2

REPORT INFORMATION
  Report Type: Report from Study
  Country: IN (occurrence: IN)
  Receive Date: 20210517
  Receipt Date: 20210517
  Transmission Date: 20210717
  Serious: Yes (Death)
  Sender: FDA-Public Use
  Company Number: NVSC2021IN058318

PATIENT
  Age: 43 Year
  Sex: Female

DRUGS (3)
  1. MEQSEL [Suspect]
     Active Substance: TRAMETINIB
     Indication: MALIGNANT MELANOMA
     Dosage: 1 MG, QD (TABLET)
     Route: 048
     Dates: start: 20201016
  2. MEQSEL [Suspect]
     Active Substance: TRAMETINIB
     Indication: NON-SMALL CELL LUNG CANCER
     Dosage: 1 MG, QD (TABLET)
     Route: 065
     Dates: start: 20201002
  3. RAFINLAR [Suspect]
     Active Substance: DABRAFENIB
     Indication: MALIGNANT MELANOMA
     Dosage: 150 MG, BID (CAPSULET)
     Route: 065
     Dates: start: 20200831

REACTIONS (2)
  - Drug intolerance [Unknown]
  - Death [Fatal]

NARRATIVE: CASE EVENT DATE: 202012
